FAERS Safety Report 15194446 (Version 1)
Quarter: 2018Q3

REPORT INFORMATION
  Report Type: Spontaneous
  Country: US (occurrence: US)
  Receive Date: 20180725
  Receipt Date: 20180725
  Transmission Date: 20181010
  Serious: No
  Sender: FDA-Public Use
  Company Number: US-BRISTOL-MYERS SQUIBB COMPANY-BMS-2018-067200

PATIENT
  Age: 92 Year
  Sex: Male
  Weight: 52.16 kg

DRUGS (1)
  1. ELIQUIS [Suspect]
     Active Substance: APIXABAN
     Indication: CEREBROVASCULAR ACCIDENT PROPHYLAXIS
     Dosage: 2.5 MG, QD
     Route: 048
     Dates: start: 201712

REACTIONS (3)
  - Back pain [Unknown]
  - Intentional underdose [Unknown]
  - Epistaxis [Unknown]

NARRATIVE: CASE EVENT DATE: 201806
